FAERS Safety Report 11094532 (Version 1)
Quarter: 2015Q2

REPORT INFORMATION
  Report Type: Spontaneous
  Country: US (occurrence: US)
  Receive Date: 20150506
  Receipt Date: 20150506
  Transmission Date: 20150821
  Serious: No
  Sender: FDA-Public Use
  Company Number: US-ANACOR-2015ANA00016

PATIENT
  Age: 74 Year
  Sex: Female
  Weight: 68.27 kg

DRUGS (2)
  1. KERYDIN [Suspect]
     Active Substance: TAVABOROLE
     Indication: FUNGAL INFECTION
     Dosage: 5 %, 1X/DAY
     Route: 061
     Dates: start: 201502, end: 201503
  2. UNSPECIFIED MEDICATIONS/SUPPLEMENTS [Concomitant]
     Active Substance: UNSPECIFIED INGREDIENT

REACTIONS (3)
  - Application site irritation [Recovered/Resolved]
  - Application site pain [Recovered/Resolved]
  - Application site exfoliation [Recovering/Resolving]

NARRATIVE: CASE EVENT DATE: 201502
